FAERS Safety Report 9497792 (Version 1)
Quarter: 2013Q3

REPORT INFORMATION
  Report Type: Spontaneous
  Country: US (occurrence: None)
  Receive Date: 20130903
  Receipt Date: 20130903
  Transmission Date: 20140515
  Serious: Yes (Other)
  Sender: FDA-Public Use
  Company Number: None

PATIENT
  Age: 35 Year
  Sex: Female
  Weight: 81.65 kg

DRUGS (1)
  1. SPIRIVA [Suspect]
     Indication: ASTHMA
     Route: 048
     Dates: start: 20130819, end: 20130823

REACTIONS (9)
  - Headache [None]
  - Dizziness [None]
  - Balance disorder [None]
  - Diarrhoea [None]
  - Tachycardia [None]
  - Hypotension [None]
  - Renal pain [None]
  - Fatigue [None]
  - Asthenia [None]
